FAERS Safety Report 19272430 (Version 2)
Quarter: 2021Q3

REPORT INFORMATION
  Report Type: Spontaneous
  Country: US (occurrence: US)
  Receive Date: 20210518
  Receipt Date: 20210819
  Transmission Date: 20211014
  Serious: No
  Sender: FDA-Public Use
  Company Number: US-THERAPEUTICSMD-2021TMD01587

PATIENT
  Age: 73 Year
  Sex: Female
  Weight: 81.63 kg

DRUGS (4)
  1. BIJUVA [Suspect]
     Active Substance: ESTRADIOL\PROGESTERONE
     Indication: HORMONE REPLACEMENT THERAPY
     Dosage: 1X/DAY, EVERY NIGHT
     Route: 048
     Dates: end: 20210408
  2. UNSPECIFIED VITAMINS [Concomitant]
     Active Substance: VITAMINS
  3. BIJUVA [Suspect]
     Active Substance: ESTRADIOL\PROGESTERONE
     Dosage: 1X/DAY, EVERY NIGHT
     Route: 048
     Dates: start: 20210414, end: 20210428
  4. UNSPECIFIED EYE MEDICATIONS [Concomitant]

REACTIONS (3)
  - Off label use [Recovered/Resolved]
  - Vaginal haemorrhage [Recovered/Resolved]
  - Muscle spasms [Recovering/Resolving]

NARRATIVE: CASE EVENT DATE: 20210408
